FAERS Safety Report 6355761-1 (Version None)
Quarter: 2009Q3

REPORT INFORMATION
  Report Type: 
  Country: None (occurrence: None)
  Receive Date: 20090911
  Receipt Date: 20090911
  Transmission Date: 20100115
  Serious: Yes (Other)
  Sender: FDA-Public Use
  Company Number: None

PATIENT
  Age: 43 Year
  Sex: Male
  Weight: 106.5953 kg

DRUGS (4)
  1. RISPERDAL CONSTA [Suspect]
     Indication: MENTAL DISORDER
     Dosage: 50 MG EVERY 2 WKS SHOT; 25 MG EVERY 2 WKS SHOT
     Dates: start: 20040101, end: 20090402
  2. RISPERDAL CONSTA [Suspect]
     Indication: SCHIZOPHRENIA
     Dosage: 50 MG EVERY 2 WKS SHOT; 25 MG EVERY 2 WKS SHOT
     Dates: start: 20040101, end: 20090402
  3. RISPERDAL CONSTA [Suspect]
     Indication: MENTAL DISORDER
     Dosage: 50 MG EVERY 2 WKS SHOT; 25 MG EVERY 2 WKS SHOT
     Dates: start: 20090401, end: 20090803
  4. RISPERDAL CONSTA [Suspect]
     Indication: SCHIZOPHRENIA
     Dosage: 50 MG EVERY 2 WKS SHOT; 25 MG EVERY 2 WKS SHOT
     Dates: start: 20090401, end: 20090803

REACTIONS (10)
  - BLOOD CHOLESTEROL INCREASED [None]
  - BLOOD TRIGLYCERIDES INCREASED [None]
  - CONSTIPATION [None]
  - COUGH [None]
  - DIZZINESS [None]
  - DYSPHAGIA [None]
  - IMPAIRED WORK ABILITY [None]
  - INSOMNIA [None]
  - PHOTOSENSITIVITY REACTION [None]
  - WEIGHT INCREASED [None]
